FAERS Safety Report 10440720 (Version 1)
Quarter: 2014Q3

REPORT INFORMATION
  Report Type: Spontaneous
  Country: US (occurrence: None)
  Receive Date: 20140905
  Receipt Date: 20140905
  Transmission Date: 20150326
  Serious: No
  Sender: FDA-Public Use
  Company Number: None

PATIENT
  Age: 42 Year
  Sex: Female
  Weight: 73.94 kg

DRUGS (1)
  1. AUBAGIO [Suspect]
     Active Substance: TERIFLUNOMIDE
     Indication: MULTIPLE SCLEROSIS
     Dosage: 14 MG ONCE DAILY TAKEN BY MOUTH
     Route: 048
     Dates: start: 20140324, end: 20140904

REACTIONS (1)
  - Alopecia [None]

NARRATIVE: CASE EVENT DATE: 20140904
